FAERS Safety Report 13441157 (Version 1)
Quarter: 2017Q2

REPORT INFORMATION
  Report Type: Spontaneous
  Country: US (occurrence: US)
  Receive Date: 20170413
  Receipt Date: 20170413
  Transmission Date: 20170830
  Serious: Yes (Other)
  Sender: FDA-Public Use
  Company Number: US-AMGEN-USASP2017055683

PATIENT
  Age: 74 Year
  Sex: Female

DRUGS (2)
  1. ENBREL [Suspect]
     Active Substance: ETANERCEPT
     Indication: RHEUMATOID ARTHRITIS
     Dosage: 50 MG, QWK
     Route: 065
     Dates: start: 200906
  2. INH [Interacting]
     Active Substance: ISONIAZID
     Indication: TUBERCULOSIS
     Dosage: UNK
     Route: 065

REACTIONS (10)
  - Meniscus injury [Unknown]
  - Drug interaction [Unknown]
  - Fall [Unknown]
  - Petechiae [Unknown]
  - Condition aggravated [Unknown]
  - Pyrexia [Unknown]
  - Nausea [Unknown]
  - Influenza [Unknown]
  - Mycobacterium tuberculosis complex test positive [Unknown]
  - Viral upper respiratory tract infection [Unknown]

NARRATIVE: CASE EVENT DATE: 2014
